FAERS Safety Report 7527355-3 (Version None)
Quarter: 2011Q2

REPORT INFORMATION
  Report Type: 
  Country: None (occurrence: None)
  Receive Date: 20110607
  Receipt Date: 20090125
  Transmission Date: 20111010
  Serious: Yes (Other)
  Sender: FDA-Public Use
  Company Number: US-BAYER-200911491NA

PATIENT
  Age: 42 Year
  Sex: Female
  Weight: 68.027 kg

DRUGS (1)
  1. TRASYLOL [Suspect]
     Indication: HYSTERECTOMY
     Route: 042
     Dates: start: 19970101

REACTIONS (10)
  - RENAL FAILURE [None]
  - ANXIETY [None]
  - FEAR [None]
  - MULTI-ORGAN FAILURE [None]
  - RENAL IMPAIRMENT [None]
  - EMOTIONAL DISTRESS [None]
  - STRESS [None]
  - UNEVALUABLE EVENT [None]
  - RENAL INJURY [None]
  - PAIN [None]
